FAERS Safety Report 4836559-X (Version None)
Quarter: 2005Q4

REPORT INFORMATION
  Report Type: 
  Country: None (occurrence: None)
  Receive Date: 20051121
  Receipt Date: 20051107
  Transmission Date: 20060501
  Serious: Yes (Other)
  Sender: FDA-Public Use
  Company Number: 2005154827

PATIENT
  Age: 46 Year
  Sex: Male

DRUGS (2)
  1. ZYRTEC [Suspect]
     Indication: RHINITIS ALLERGIC
     Dosage: 10 MG (10 MG, 1 IN 1 D), ORAL
     Route: 048
     Dates: start: 20040201, end: 20050215
  2. ALLOPURINOL [Suspect]
     Indication: GOUT
     Dosage: 300 MG (300 MG, 1 IN 1 D), ORAL
     Route: 048
     Dates: start: 20040201, end: 20050215

REACTIONS (3)
  - BRONCHITIS [None]
  - INTERSTITIAL LUNG DISEASE [None]
  - PNEUMONIA [None]
